FAERS Safety Report 12502719 (Version 4)
Quarter: 2016Q3

REPORT INFORMATION
  Report Type: Spontaneous
  Country: JP (occurrence: JP)
  Receive Date: 20160628
  Receipt Date: 20160926
  Transmission Date: 20161109
  Serious: Yes (Life-Threatening, Disabling, Other)
  Sender: FDA-Public Use
  Company Number: JP-009507513-1606JPN008318

PATIENT
  Age: 30 Year
  Sex: Female
  Weight: 58 kg

DRUGS (16)
  1. METOCLOPRAMIDE. [Concomitant]
     Active Substance: METOCLOPRAMIDE
     Indication: PROPHYLAXIS OF NAUSEA AND VOMITING
     Dosage: DIVIDED DOSE FREQUENCY UNKNOWN
     Route: 041
     Dates: start: 20160610, end: 20160610
  2. MASKIN [Concomitant]
     Indication: INFECTION PROPHYLAXIS
     Dosage: DAILY DOSAGE UNKNOWN
     Route: 065
     Dates: start: 20160610, end: 20160610
  3. DIPRIVAN [Concomitant]
     Active Substance: PROPOFOL
     Indication: GENERAL ANAESTHESIA
     Dosage: DIVIDED DOSE FREQUENCY UNKNOWN
     Route: 042
     Dates: start: 20160610, end: 20160610
  4. FENTANYL. [Concomitant]
     Active Substance: FENTANYL
     Indication: GENERAL ANAESTHESIA
     Dosage: 50 MICROG+100 MICRO G+25 MICROGX 2
     Route: 042
     Dates: start: 20160610, end: 20160610
  5. PHYSIO 140 [Concomitant]
     Dosage: 500ML+350ML (WITH GLUCOSE)+250ML (WITH GLUCOSE)/ DAY
     Route: 051
     Dates: start: 20160610, end: 20160610
  6. ATROPINE SULFATE. [Concomitant]
     Active Substance: ATROPINE SULFATE
     Indication: GENERAL ANAESTHESIA
     Dosage: DIVIDED DOSE FREQUENCY UNKNOWN
     Route: 042
     Dates: start: 20160610, end: 20160610
  7. SEVOFLURANE. [Concomitant]
     Active Substance: SEVOFLURANE
     Dosage: UNK
     Route: 055
     Dates: start: 20160610, end: 20160610
  8. OXYGEN. [Concomitant]
     Active Substance: OXYGEN
     Dosage: DAILY DOSAGE UNKNOWN
     Route: 065
     Dates: start: 20160610, end: 20160610
  9. SUPRANE [Concomitant]
     Active Substance: DESFLURANE
     Indication: MAINTENANCE OF ANAESTHESIA
     Dosage: TOTAL 20ML/DAY
     Route: 055
     Dates: start: 20160610, end: 20160610
  10. DROLEPTAN [Concomitant]
     Active Substance: DROPERIDOL
     Indication: PROPHYLAXIS OF NAUSEA AND VOMITING
     Dosage: DIVIDED DOSE FREQUENCY UNKNOWN
     Route: 042
     Dates: start: 20160610, end: 20160610
  11. ESLAX INTRAVENOUS 25MG/2.5ML [Concomitant]
     Active Substance: ROCURONIUM BROMIDE
     Indication: NEUROMUSCULAR BLOCKING THERAPY
     Dosage: DIVIDED DOSE FREQUENCY UNKNOWN
     Route: 042
     Dates: start: 20160610, end: 20160610
  12. NITROUS OXIDE. [Concomitant]
     Active Substance: NITROUS OXIDE
     Indication: MAINTENANCE OF ANAESTHESIA
     Dosage: TOTAL 54ML/DAY
     Dates: start: 20160610, end: 20160610
  13. CEFAZOLIN SODIUM. [Concomitant]
     Active Substance: CEFAZOLIN SODIUM
     Dosage: + NORMAL SALINE 50ML
     Route: 051
     Dates: start: 20160610, end: 20160610
  14. BRIDION [Suspect]
     Active Substance: SUGAMMADEX
     Indication: NEUROMUSCULAR BLOCKADE REVERSAL
     Dosage: 100 MG, ONCE
     Route: 042
     Dates: start: 20160610, end: 20160610
  15. XYLOCAINE [Concomitant]
     Active Substance: LIDOCAINE HYDROCHLORIDE
     Dosage: DIVIDED DOSE FREQUENCY UNKNOWN
     Route: 042
     Dates: start: 20160610, end: 20160610
  16. POPSCAINE [Concomitant]
     Active Substance: LEVOBUPIVACAINE HYDROCHLORIDE
     Indication: PROPHYLAXIS
     Dosage: 7ML+3ML/DAY
     Route: 051
     Dates: start: 20160610, end: 20160610

REACTIONS (3)
  - Bronchospasm [Recovered/Resolved]
  - Acute pulmonary oedema [Unknown]
  - Hypoxia [Recovered/Resolved]

NARRATIVE: CASE EVENT DATE: 20160610
